FAERS Safety Report 14189911 (Version 2)
Quarter: 2017Q4

REPORT INFORMATION
  Report Type: Spontaneous
  Country: US (occurrence: US)
  Receive Date: 20171115
  Receipt Date: 20171208
  Transmission Date: 20180321
  Serious: No
  Sender: FDA-Public Use
  Company Number: US-PFIZER INC-2017489158

PATIENT
  Age: 27 Year
  Sex: Female

DRUGS (2)
  1. EUCRISA [Suspect]
     Active Substance: CRISABOROLE
     Indication: RASH
     Dosage: UNK, 2X/DAY
     Dates: start: 20171024, end: 20171102
  2. EUCRISA [Suspect]
     Active Substance: CRISABOROLE
     Dosage: UNK
     Route: 061
     Dates: start: 20171024

REACTIONS (6)
  - Application site pruritus [Unknown]
  - Application site irritation [Unknown]
  - Condition aggravated [Unknown]
  - Application site pain [Unknown]
  - Skin burning sensation [Unknown]
  - Application site erythema [Unknown]
